FAERS Safety Report 6175204-0 (Version None)
Quarter: 2009Q2

REPORT INFORMATION
  Report Type: 
  Country: None (occurrence: None)
  Receive Date: 20090430
  Receipt Date: 20081218
  Transmission Date: 20091009
  Serious: No
  Sender: FDA-Public Use
  Company Number: US-ASTRAZENECA-2008UW28318

PATIENT
  Age: 71 Year
  Sex: Male

DRUGS (7)
  1. NEXIUM [Suspect]
     Indication: GASTRIC ULCER HAEMORRHAGE
     Route: 048
     Dates: start: 20080401
  2. CRESTOR [Concomitant]
     Route: 048
  3. ZETIA [Concomitant]
  4. LISINOPRIL [Concomitant]
  5. FOLTEX [Concomitant]
  6. METOPROLOL TARTRATE [Concomitant]
  7. ASPIRIN [Concomitant]

REACTIONS (2)
  - BLOOD GLUCOSE INCREASED [None]
  - BLOOD PRESSURE INCREASED [None]
